FAERS Safety Report 6854266-9 (Version None)
Quarter: 2010Q3

REPORT INFORMATION
  Report Type: 
  Country: None (occurrence: None)
  Receive Date: 20100717
  Receipt Date: 20080102
  Transmission Date: 20110219
  Serious: No
  Sender: FDA-Public Use
  Company Number: US-PFIZER INC-2008001366

PATIENT
  Sex: Male
  Weight: 72.727 kg

DRUGS (8)
  1. CHANTIX [Suspect]
     Indication: SMOKING CESSATION THERAPY
     Route: 048
     Dates: start: 20071201
  2. PROTONIX [Concomitant]
     Route: 048
  3. HYDROCODONE [Concomitant]
     Route: 048
  4. CRESTOR [Concomitant]
     Route: 048
  5. DESMOPRESSIN ACETATE [Concomitant]
     Route: 048
  6. SYNTHROID [Concomitant]
     Route: 048
  7. VITAMINS [Concomitant]
     Route: 048
  8. ACETYLSALICYLIC ACID [Concomitant]
     Route: 048

REACTIONS (1)
  - DYSPHONIA [None]
